FAERS Safety Report 19454436 (Version 3)
Quarter: 2021Q3

REPORT INFORMATION
  Report Type: Spontaneous
  Country: US (occurrence: US)
  Receive Date: 20210623
  Receipt Date: 20210827
  Transmission Date: 20211014
  Serious: Yes (Other)
  Sender: FDA-Public Use
  Company Number: US-AMNEAL PHARMACEUTICALS-2021-AMRX-02267

PATIENT
  Sex: Female

DRUGS (1)
  1. RYTARY [Suspect]
     Active Substance: CARBIDOPA\LEVODOPA
     Indication: PARKINSON^S DISEASE
     Dosage: 2 CAPSULES, EVERY 4HR, AT 5?9?1?5
     Route: 048

REACTIONS (3)
  - Constipation [Recovering/Resolving]
  - Dizziness [Not Recovered/Not Resolved]
  - Wrist fracture [Unknown]

NARRATIVE: CASE EVENT DATE: 2020
